FAERS Safety Report 6688732-6 (Version None)
Quarter: 2010Q2

REPORT INFORMATION
  Report Type: 
  Country: None (occurrence: None)
  Receive Date: 20100420
  Receipt Date: 20100414
  Transmission Date: 20101027
  Serious: Yes (Other)
  Sender: FDA-Public Use
  Company Number: A0855728A

PATIENT
  Age: 39 Year
  Sex: Female

DRUGS (1)
  1. SERETIDE [Suspect]

REACTIONS (3)
  - CYANOSIS CENTRAL [None]
  - DYSPNOEA [None]
  - HYPOTENSION [None]
